FAERS Safety Report 6030292-7 (Version None)
Quarter: 2009Q1

REPORT INFORMATION
  Report Type: 
  Country: None (occurrence: None)
  Receive Date: 20090107
  Receipt Date: 20080623
  Transmission Date: 20090719
  Serious: No
  Sender: FDA-Public Use
  Company Number: US-BAYER-200812828BCC

PATIENT
  Age: 80 Year
  Sex: Male
  Weight: 64 kg

DRUGS (9)
  1. ALEVE [Suspect]
     Indication: ARTHRITIS
     Dosage: TOTAL DAILY DOSE: 220 MG  UNIT DOSE: 220 MG
     Route: 048
  2. ALEVE [Suspect]
     Dosage: TOTAL DAILY DOSE: 110 MG  UNIT DOSE: 220 MG
     Route: 048
  3. MESTINON [Concomitant]
  4. MULTI-VITAMIN [Concomitant]
  5. FISH OIL [Concomitant]
  6. GLUCOSAMINE [Concomitant]
  7. COENZYME Q10 [Concomitant]
  8. ASPIRIN [Concomitant]
     Route: 048
  9. PYCNOGENOL [Concomitant]

REACTIONS (1)
  - DIZZINESS [None]
